FAERS Safety Report 24289739 (Version 1)
Quarter: 2024Q3

REPORT INFORMATION
  Report Type: Spontaneous
  Country: GB (occurrence: GB)
  Receive Date: 20240906
  Receipt Date: 20240906
  Transmission Date: 20241017
  Serious: No
  Sender: ALKEM
  Company Number: None

PATIENT
  Age: 21 Year
  Sex: Male
  Weight: 62 kg

DRUGS (3)
  1. PREGABALIN [Suspect]
     Active Substance: PREGABALIN
     Indication: Neuropathy peripheral
     Dosage: 150 MILLIGRAM, QD (CAPSULE)
     Route: 065
     Dates: start: 20231201
  2. CODEINE [Concomitant]
     Active Substance: CODEINE
     Indication: Insomnia
     Dosage: UNK
     Route: 065
     Dates: start: 20231101
  3. PROMETHAZINE [Concomitant]
     Active Substance: PROMETHAZINE HYDROCHLORIDE
     Indication: Insomnia
     Dosage: UNK
     Route: 065
     Dates: start: 20231101

REACTIONS (2)
  - Micturition urgency [Recovered/Resolved with Sequelae]
  - Pollakiuria [Recovered/Resolved]
